FAERS Safety Report 5573855-5 (Version None)
Quarter: 2007Q4

REPORT INFORMATION
  Report Type: 
  Country: None (occurrence: None)
  Receive Date: 20071226
  Receipt Date: 20071218
  Transmission Date: 20080405
  Serious: Yes (Disabling)
  Sender: FDA-Public Use
  Company Number: DE-ASTRAZENECA-2007PK02607

PATIENT
  Age: 46 Year
  Sex: Female

DRUGS (2)
  1. PROPOFOL [Suspect]
     Indication: STUPOR
     Route: 042
     Dates: start: 20070917
  2. FENTANYL [Concomitant]

REACTIONS (9)
  - APPETITE DISORDER [None]
  - HEPATITIS TOXIC [None]
  - HYPERCHOLESTEROLAEMIA [None]
  - IMPAIRED HEALING [None]
  - NAUSEA [None]
  - SKIN DISORDER [None]
  - THROMBOPHLEBITIS [None]
  - THROMBOPHLEBITIS SUPERFICIAL [None]
  - VENOUS STENOSIS [None]
